FAERS Safety Report 9869904 (Version 2)
Quarter: 2014Q1

REPORT INFORMATION
  Report Type: Spontaneous
  Country: IT (occurrence: None)
  Receive Date: 20140131
  Receipt Date: 20140305
  Transmission Date: 20141002
  Serious: Yes (Life-Threatening)
  Sender: FDA-Public Use
  Company Number: AUR-APL-2014-00814

PATIENT
  Sex: Male

DRUGS (1)
  1. METFORMIN (METFORMIN) [Suspect]
     Indication: PRODUCT USED FOR UNKNOWN INDICATION

REACTIONS (3)
  - Anuria [None]
  - Hyperkalaemia [None]
  - Lactic acidosis [None]
